FAERS Safety Report 8343822-7 (Version None)
Quarter: 2012Q2

REPORT INFORMATION
  Report Type: 
  Country: None (occurrence: None)
  Receive Date: 20120508
  Receipt Date: 20120426
  Transmission Date: 20120825
  Serious: Yes (Other)
  Sender: FDA-Public Use
  Company Number: US-JNJFOC-20120413131

PATIENT
  Age: 49 Year
  Sex: Female

DRUGS (6)
  1. EXTRA STRENGTH TYLENOL [Suspect]
     Indication: BACK PAIN
     Dosage: 1 TABLET 4 TIMES A DAY
     Route: 048
     Dates: start: 20120101
  2. EXTRA STRENGTH TYLENOL [Suspect]
     Indication: INFLUENZA
     Dosage: 1 TABLET 4 TIMES A DAY
     Route: 048
     Dates: start: 20120101
  3. BENADRYL [Concomitant]
     Indication: SEASONAL ALLERGY
     Route: 065
  4. EXTRA STRENGTH TYLENOL [Suspect]
     Indication: PYREXIA
     Dosage: 1 TABLET 4 TIMES A DAY
     Route: 048
     Dates: start: 20120101
  5. EXTRA STRENGTH TYLENOL [Suspect]
     Indication: PAIN IN EXTREMITY
     Dosage: 1 TABLET 4 TIMES A DAY
     Route: 048
     Dates: start: 20120101
  6. UNSPECIFIED HYPERTENSIVE MEDICATION [Concomitant]
     Indication: HYPERTENSION
     Route: 065

REACTIONS (5)
  - KIDNEY INFECTION [None]
  - PRODUCT QUALITY ISSUE [None]
  - DRUG INEFFECTIVE [None]
  - EXPIRED DRUG ADMINISTERED [None]
  - ABDOMINAL DISCOMFORT [None]
